FAERS Safety Report 5922258-X (Version None)
Quarter: 2008Q4

REPORT INFORMATION
  Report Type: 
  Country: None (occurrence: None)
  Receive Date: 20081017
  Receipt Date: 20081008
  Transmission Date: 20090506
  Serious: No
  Sender: FDA-Public Use
  Company Number: CR-AVENTIS-200819724GDDC

PATIENT
  Age: 32 Year
  Sex: Female

DRUGS (2)
  1. ARAVA [Suspect]
     Indication: RHEUMATOID ARTHRITIS
     Route: 048
     Dates: start: 20080819, end: 20081008
  2. ATENOLOL [Concomitant]
     Indication: ARRHYTHMIA
     Route: 048
     Dates: start: 20040101

REACTIONS (1)
  - DRUG EXPOSURE DURING PREGNANCY [None]
